FAERS Safety Report 9023573 (Version 5)
Quarter: 2013Q4

REPORT INFORMATION
  Report Type: Spontaneous
  Country: FI (occurrence: FI)
  Receive Date: 20130121
  Receipt Date: 20131223
  Transmission Date: 20140711
  Serious: Yes (Other)
  Sender: FDA-Public Use
  Company Number: PHHY2013FI005269

PATIENT
  Age: 48 Year
  Sex: Female

DRUGS (5)
  1. GILENYA [Suspect]
     Indication: MULTIPLE SCLEROSIS
     Dosage: 0.5 MG, QD
     Route: 048
     Dates: start: 20130102
  2. ANTABUS [Concomitant]
     Indication: ALCOHOL USE
     Dosage: 1 DF, QD
  3. VITAMIN D [Concomitant]
     Dosage: UNK UKN, UNK
  4. TRIPTYL [Concomitant]
     Dosage: UNK UKN, UNK
  5. SEPRAM [Concomitant]
     Dosage: UNK UKN, UNK, IN MORNINGS

REACTIONS (4)
  - Eyelid oedema [Recovered/Resolved]
  - Hypersensitivity [Unknown]
  - Visual impairment [Unknown]
  - Sinusitis [Unknown]
